FAERS Safety Report 20806778 (Version 2)
Quarter: 2022Q2

REPORT INFORMATION
  Report Type: Spontaneous
  Country: RO (occurrence: RO)
  Receive Date: 20220510
  Receipt Date: 20220610
  Transmission Date: 20220720
  Serious: Yes (Other)
  Sender: FDA-Public Use
  Company Number: RO-CELLTRION INC.-2022RO005910

PATIENT

DRUGS (15)
  1. TRASTUZUMAB [Suspect]
     Active Substance: TRASTUZUMAB
     Indication: Invasive breast carcinoma
     Dosage: PERTUZUMAB SYSTEMIC THERAPY WAS INITIATED IN COMBINATION WITH TRASTUZUMAB AND DOCETAXEL FOR FIVE MON
  2. TRASTUZUMAB [Suspect]
     Active Substance: TRASTUZUMAB
     Indication: Breast cancer
     Dosage: UNK
     Route: 065
  3. TRASTUZUMAB [Suspect]
     Active Substance: TRASTUZUMAB
     Indication: Metastases to liver
  4. PERTUZUMAB [Suspect]
     Active Substance: PERTUZUMAB
     Indication: Invasive breast carcinoma
     Dosage: PERTUZUMAB SYSTEMIC THERAPY WAS INITIATED IN COMBINATION WITH TRASTUZUMAB AND DOCETAXEL FOR FIVE MON
  5. PERTUZUMAB [Suspect]
     Active Substance: PERTUZUMAB
     Indication: Metastases to liver
     Dosage: UNK
     Route: 062
  6. PERTUZUMAB [Suspect]
     Active Substance: PERTUZUMAB
     Indication: Breast cancer
     Route: 065
  7. DOCETAXEL [Suspect]
     Active Substance: DOCETAXEL
     Indication: Invasive breast carcinoma
     Dosage: PERTUZUMAB SYSTEMIC THERAPY WAS INITIATED IN COMBINATION WITH TRASTUZUMAB AND DOCETAXEL FOR FIVE MON
  8. DOCETAXEL [Suspect]
     Active Substance: DOCETAXEL
     Indication: Breast cancer
     Dosage: UNK
     Route: 065
  9. DOCETAXEL [Suspect]
     Active Substance: DOCETAXEL
     Indication: Metastases to liver
  10. EPIRUBICIN [Suspect]
     Active Substance: EPIRUBICIN
     Indication: Chemotherapy
     Dosage: 90 MG/M2
  11. EPIRUBICIN [Suspect]
     Active Substance: EPIRUBICIN
     Indication: Neoadjuvant therapy
  12. CYCLOPHOSPHAMIDE [Suspect]
     Active Substance: CYCLOPHOSPHAMIDE
     Indication: Chemotherapy
     Dosage: 600 MG/M2
  13. CYCLOPHOSPHAMIDE [Suspect]
     Active Substance: CYCLOPHOSPHAMIDE
     Indication: Neoadjuvant therapy
  14. LETROZOLE [Suspect]
     Active Substance: LETROZOLE
     Indication: Hormone therapy
  15. CARBOPLATIN [Concomitant]
     Active Substance: CARBOPLATIN
     Indication: Invasive breast carcinoma

REACTIONS (8)
  - Pneumothorax [Recovering/Resolving]
  - Dyspnoea at rest [Recovering/Resolving]
  - Disease progression [Recovering/Resolving]
  - Fatigue [Recovering/Resolving]
  - General physical condition abnormal [Unknown]
  - General physical health deterioration [Recovering/Resolving]
  - Pleural effusion [Recovering/Resolving]
  - Drug ineffective [Unknown]
